FAERS Safety Report 18025964 (Version 3)
Quarter: 2021Q3

REPORT INFORMATION
  Report Type: Spontaneous
  Country: CA (occurrence: CA)
  Receive Date: 20200715
  Receipt Date: 20210713
  Transmission Date: 20211014
  Serious: Yes (Other)
  Sender: FDA-Public Use
  Company Number: CA-ACCORD-190242

PATIENT
  Age: 18 Month
  Sex: Male

DRUGS (5)
  1. ETOPOSIDE. [Suspect]
     Active Substance: ETOPOSIDE
     Indication: NEUROBLASTOMA
     Dosage: FREQUENCY? CYCLICAL
  2. DOXORUBICIN [Suspect]
     Active Substance: DOXORUBICIN
     Indication: NEUROBLASTOMA
     Dosage: FREQUENCY? CYCLICAL
  3. CYCLOPHOSPHAMIDE/CYCLOPHOSPHAMIDE MONOHYDRATE [Suspect]
     Active Substance: CYCLOPHOSPHAMIDE
     Indication: NEUROBLASTOMA
     Dosage: FREQUENCY? CYCLICAL
  4. CARBOPLATIN. [Suspect]
     Active Substance: CARBOPLATIN
     Indication: NEUROBLASTOMA
     Dosage: SOLUTION INTRAVENOUS, FREQUENCY? CYCLICAL
  5. TOPOTECAN [Suspect]
     Active Substance: TOPOTECAN HYDROCHLORIDE
     Indication: NEUROBLASTOMA
     Dosage: FREQUENCY? CYCLICAL

REACTIONS (6)
  - Off label use [Unknown]
  - Neuroblastoma [Unknown]
  - Therapeutic response decreased [Unknown]
  - Anaplastic lymphoma kinase gene mutation [Unknown]
  - Malignant neoplasm progression [Unknown]
  - Metastases to bone [Unknown]
